FAERS Safety Report 5405314-4 (Version None)
Quarter: 2007Q3

REPORT INFORMATION
  Report Type: 
  Country: None (occurrence: None)
  Receive Date: 20070803
  Receipt Date: 20070726
  Transmission Date: 20080115
  Serious: Yes (Other)
  Sender: FDA-Public Use
  Company Number: B0481696A

PATIENT
  Age: 33 Year
  Sex: Female

DRUGS (3)
  1. CLENIL [Suspect]
     Indication: ASTHMA
     Dosage: 200MCG TWICE PER DAY
     Route: 055
     Dates: start: 20070627, end: 20070702
  2. NORIDAY [Concomitant]
     Indication: CONTRACEPTION
     Dosage: 350MCG PER DAY
     Route: 048
     Dates: start: 20050707
  3. SALBUTAMOL [Concomitant]
     Indication: ASTHMA
     Dosage: 200MCG PER DAY
     Route: 055
     Dates: start: 20050828

REACTIONS (2)
  - BRONCHOSPASM [None]
  - COUGH [None]
